FAERS Safety Report 13902195 (Version 3)
Quarter: 2017Q4

REPORT INFORMATION
  Report Type: Report from Study
  Country: None (occurrence: US)
  Receive Date: 20170824
  Receipt Date: 20171010
  Transmission Date: 20180320
  Serious: Yes (Other)
  Sender: FDA-Public Use
  Company Number: US-ABBVIE-17K-163-2020121-00

PATIENT
  Sex: Female

DRUGS (1)
  1. HUMIRA [Suspect]
     Active Substance: ADALIMUMAB
     Indication: PSORIATIC ARTHROPATHY
     Route: 058
     Dates: start: 20170529

REACTIONS (23)
  - Synovial cyst [Recovering/Resolving]
  - Weight increased [Unknown]
  - Gait disturbance [Unknown]
  - Abdominal distension [Not Recovered/Not Resolved]
  - Joint stiffness [Unknown]
  - Hypoaesthesia [Unknown]
  - Hemiplegia [Unknown]
  - Frequent bowel movements [Not Recovered/Not Resolved]
  - Pain in extremity [Unknown]
  - Urinary incontinence [Not Recovered/Not Resolved]
  - Hyperhidrosis [Unknown]
  - Abdominal pain upper [Not Recovered/Not Resolved]
  - Dyspnoea [Unknown]
  - Fatigue [Not Recovered/Not Resolved]
  - Loss of personal independence in daily activities [Unknown]
  - Peripheral swelling [Not Recovered/Not Resolved]
  - Ulcer [Unknown]
  - Dizziness [Unknown]
  - Diarrhoea [Unknown]
  - Joint swelling [Unknown]
  - Arthralgia [Not Recovered/Not Resolved]
  - Urinary tract infection [Unknown]
  - Limb discomfort [Unknown]

NARRATIVE: CASE EVENT DATE: 2017
